FAERS Safety Report 21554977 (Version 1)
Quarter: 2022Q4

REPORT INFORMATION
  Report Type: Spontaneous
  Country: US (occurrence: US)
  Receive Date: 20221104
  Receipt Date: 20221104
  Transmission Date: 20230113
  Serious: No
  Sender: FDA-Public Use
  Company Number: US-BRISTOL-MYERS SQUIBB COMPANY-2022-132522

PATIENT
  Age: 72 Year
  Sex: Male

DRUGS (1)
  1. POMALYST [Suspect]
     Active Substance: POMALIDOMIDE
     Indication: Neoplasm
     Dosage: TAKE 1 CAPSULE BY MOUTH DAILY FOR 21 DAYS EVERY 28 DAYS
     Route: 048

REACTIONS (2)
  - Nasopharyngitis [Unknown]
  - Off label use [Unknown]
